FAERS Safety Report 20480663 (Version 1)
Quarter: 2022Q1

REPORT INFORMATION
  Report Type: Spontaneous
  Country: US (occurrence: None)
  Receive Date: 20220216
  Receipt Date: 20220216
  Transmission Date: 20220424
  Serious: Yes (Other)
  Sender: FDA-Public Use
  Company Number: None

PATIENT
  Age: 68 Year
  Sex: Male
  Weight: 134.2 kg

DRUGS (7)
  1. REMDESIVIR [Suspect]
     Active Substance: REMDESIVIR
     Indication: SARS-CoV-2 test positive
     Dosage: FREQUENCY : DAILY;?
     Route: 042
  2. REMDESIVIR [Suspect]
     Active Substance: REMDESIVIR
     Indication: SARS-CoV-2 test positive
     Dosage: OTHER FREQUENCY : ONE TIME DOSE;?
     Route: 042
  3. Amiodarone 400mg [Concomitant]
     Dates: start: 20220206, end: 20220211
  4. APIXABAN [Concomitant]
     Active Substance: APIXABAN
     Dates: start: 20220206, end: 20220211
  5. Docusate 100 mg [Concomitant]
     Dates: start: 20220207, end: 20220211
  6. METOPROLOL [Concomitant]
     Active Substance: METOPROLOL
     Dates: start: 20220207, end: 20220211
  7. TYLENOL [Concomitant]
     Active Substance: ACETAMINOPHEN
     Dates: start: 20220207, end: 20220207

REACTIONS (2)
  - Aspartate aminotransferase increased [None]
  - Alanine aminotransferase increased [None]
